FAERS Safety Report 21168754 (Version 17)
Quarter: 2023Q1

REPORT INFORMATION
  Report Type: Report from Study
  Country: US (occurrence: US)
  Receive Date: 20220803
  Receipt Date: 20230327
  Transmission Date: 20230418
  Serious: Yes (Life-Threatening, Hospitalization)
  Sender: FDA-Public Use
  Company Number: US-HORIZON THERAPEUTICS-HZN-2022-005725

PATIENT

DRUGS (96)
  1. GLYCEROL PHENYLBUTYRATE [Suspect]
     Active Substance: GLYCEROL PHENYLBUTYRATE
     Indication: Urea cycle disorder
     Dosage: 2.1 ML, QD
     Route: 048
     Dates: start: 20220412, end: 20220412
  2. GLYCEROL PHENYLBUTYRATE [Suspect]
     Active Substance: GLYCEROL PHENYLBUTYRATE
     Dosage: 2.8 ML, QD
     Route: 048
     Dates: start: 20220413, end: 20220417
  3. GLYCEROL PHENYLBUTYRATE [Suspect]
     Active Substance: GLYCEROL PHENYLBUTYRATE
     Dosage: 3.5 ML, QD
     Route: 048
     Dates: start: 20220418, end: 20220418
  4. GLYCEROL PHENYLBUTYRATE [Suspect]
     Active Substance: GLYCEROL PHENYLBUTYRATE
     Dosage: 4.2 ML, QD
     Route: 048
     Dates: start: 20220419, end: 20220419
  5. GLYCEROL PHENYLBUTYRATE [Suspect]
     Active Substance: GLYCEROL PHENYLBUTYRATE
     Dosage: 2.8 ML, QD
     Route: 048
     Dates: start: 20220420, end: 20220424
  6. GLYCEROL PHENYLBUTYRATE [Suspect]
     Active Substance: GLYCEROL PHENYLBUTYRATE
     Dosage: 3.5 ML, QD
     Route: 048
     Dates: start: 20220425, end: 20220426
  7. GLYCEROL PHENYLBUTYRATE [Suspect]
     Active Substance: GLYCEROL PHENYLBUTYRATE
     Dosage: 2.4 ML, QD
     Route: 048
     Dates: start: 20220427, end: 20220518
  8. GLYCEROL PHENYLBUTYRATE [Suspect]
     Active Substance: GLYCEROL PHENYLBUTYRATE
     Dosage: 2.2 ML
     Route: 048
     Dates: start: 20220519, end: 20220601
  9. GLYCEROL PHENYLBUTYRATE [Suspect]
     Active Substance: GLYCEROL PHENYLBUTYRATE
     Dosage: 2.4 ML
     Route: 048
     Dates: start: 20220602, end: 20220620
  10. GLYCEROL PHENYLBUTYRATE [Suspect]
     Active Substance: GLYCEROL PHENYLBUTYRATE
     Dosage: 2.7 ML
     Route: 048
     Dates: start: 20220621, end: 20220704
  11. GLYCEROL PHENYLBUTYRATE [Suspect]
     Active Substance: GLYCEROL PHENYLBUTYRATE
     Dosage: 3 ML
     Route: 048
     Dates: start: 20220705, end: 20220720
  12. GLYCEROL PHENYLBUTYRATE [Suspect]
     Active Substance: GLYCEROL PHENYLBUTYRATE
     Dosage: 3.3 ML
     Route: 048
     Dates: start: 20220721, end: 20220727
  13. ATROPINE [Concomitant]
     Active Substance: ATROPINE
     Indication: Cardiac failure acute
     Dosage: 0.07 MG, PRN (FOR INJECTABLE-PEDS)
     Route: 050
     Dates: start: 20220413, end: 20220419
  14. CITRULLINE [Concomitant]
     Active Substance: CITRULLINE
     Indication: Ornithine transcarbamoylase deficiency
     Dosage: 715 MG, QD (FOR ORAL LIQUID-PEDS)
     Route: 048
     Dates: start: 20220413, end: 20220414
  15. CITRULLINE [Concomitant]
     Active Substance: CITRULLINE
     Dosage: 895 MG, QD (FOR ORAL LIQUID-PEDS)
     Route: 048
     Dates: start: 20220414, end: 20220420
  16. CITRULLINE [Concomitant]
     Active Substance: CITRULLINE
     Dosage: 715 MG, QD (FOR ORAL LIQUID-PEDS)
     Route: 048
     Dates: start: 20220420, end: 20220420
  17. CITRULLINE [Concomitant]
     Active Substance: CITRULLINE
     Dosage: 895 MG, QD (FOR ORAL LIQUID-PEDS)
     Route: 048
     Dates: start: 20220420, end: 20220425
  18. CITRULLINE [Concomitant]
     Active Substance: CITRULLINE
     Dosage: 880 MG, QD (FOR ORAL LIQUID-PEDS)
     Route: 048
     Dates: start: 20220425, end: 20220426
  19. CITRULLINE [Concomitant]
     Active Substance: CITRULLINE
     Dosage: 1100 MG, QD (FOR ORAL LIQUID-PEDS)
     Route: 048
     Dates: start: 20220426, end: 20220429
  20. CITRULLINE [Concomitant]
     Active Substance: CITRULLINE
     Dosage: 1200 MG, QD (FOR ORAL LIQUID-PEDS)
     Route: 048
     Dates: start: 20220518, end: 20220609
  21. CITRULLINE [Concomitant]
     Active Substance: CITRULLINE
     Dosage: 1335 MG, QD (FOR ORAL LIQUID-PEDS)
     Route: 048
     Dates: start: 20220609, end: 20220617
  22. CITRULLINE [Concomitant]
     Active Substance: CITRULLINE
     Dosage: 1440 MG, QD (FOR ORAL LIQUID-PEDS)
     Route: 048
     Dates: start: 20220617, end: 20220623
  23. CITRULLINE [Concomitant]
     Active Substance: CITRULLINE
     Dosage: 1900 MG, QD (FOR ORAL LIQUID-PEDS)
     Route: 048
     Dates: start: 20220726, end: 20220728
  24. GLYCERIN [Concomitant]
     Active Substance: GLYCERIN
     Indication: Constipation
     Dosage: 0.25, QD (FOR RECTAL-PEDS)
     Route: 054
     Dates: start: 20220413, end: 20220427
  25. GLUCAGON [Concomitant]
     Active Substance: GLUCAGON
     Indication: Hypoglycaemia
     Dosage: 1 MG, PRN (FOR INJECTABLE-PEDS)
     Route: 050
     Dates: start: 20220413, end: 20220415
  26. GLUCAGON [Concomitant]
     Active Substance: GLUCAGON
     Dosage: 0.5 MG, PRN, NJECTABLE-PEDS
     Route: 030
     Dates: start: 20220726, end: 20220728
  27. ARGININE HYDROCHLORIDE [Concomitant]
     Active Substance: ARGININE HYDROCHLORIDE
     Indication: Hyperammonaemia
     Dosage: 715 MG, QD (FOR IV PIGGYBACK-PEDS)
     Route: 042
     Dates: start: 20220413, end: 20220415
  28. ARGININE HYDROCHLORIDE [Concomitant]
     Active Substance: ARGININE HYDROCHLORIDE
     Dosage: 440 MG, PRN, IV PIGGY BACK- PEDS
     Route: 042
     Dates: start: 20220426, end: 20220427
  29. ARGININE HYDROCHLORIDE [Concomitant]
     Active Substance: ARGININE HYDROCHLORIDE
     Dosage: 880 MG, QD,  IV PIGGY BACK- PEDS
     Route: 042
     Dates: start: 20220427, end: 20220429
  30. DIAZOXIDE [Concomitant]
     Active Substance: DIAZOXIDE
     Indication: Hypoglycaemia
     Dosage: 12 MG Q8 (FOR ORAL LIQUID-PEDS)
     Route: 050
     Dates: start: 20220413, end: 20220415
  31. DIAZOXIDE [Concomitant]
     Active Substance: DIAZOXIDE
     Dosage: 9.5 MG Q8 (FOR ORAL LIQUID-PEDS)
     Route: 050
     Dates: start: 20220415, end: 20220417
  32. DIAZOXIDE [Concomitant]
     Active Substance: DIAZOXIDE
     Dosage: 9.5 MG Q8 (FOR ORAL LIQUID-PEDS)
     Route: 050
     Dates: start: 20220417, end: 20220429
  33. DIAZOXIDE [Concomitant]
     Active Substance: DIAZOXIDE
     Dosage: 7.2 MG, TID, ORAL LIQUID- PEDS
     Route: 048
     Dates: start: 20220518, end: 20220520
  34. DIAZOXIDE [Concomitant]
     Active Substance: DIAZOXIDE
     Dosage: 10 MG TID, ORAL LIQUID- PEDS
     Route: 048
     Dates: start: 20220520, end: 20220523
  35. DIAZOXIDE [Concomitant]
     Active Substance: DIAZOXIDE
     Dosage: 13 MG, TID, ORAL LIQUID- PEDS
     Route: 048
     Dates: start: 20220523, end: 20220610
  36. DIAZOXIDE [Concomitant]
     Active Substance: DIAZOXIDE
     Dosage: 15 MG, TID, ORAL LIQUID- PEDS
     Route: 048
     Dates: start: 20220610, end: 20220616
  37. DIAZOXIDE [Concomitant]
     Active Substance: DIAZOXIDE
     Dosage: 17 MG, TID, ORAL LIQUID- PEDS
     Route: 048
     Dates: start: 20220616, end: 20220620
  38. DIAZOXIDE [Concomitant]
     Active Substance: DIAZOXIDE
     Dosage: 20 MG, TID, ORAL LIQUID- PEDS
     Route: 048
     Dates: start: 20220620, end: 20220623
  39. DIAZOXIDE [Concomitant]
     Active Substance: DIAZOXIDE
     Dosage: 20 MG, TID, ORAL LIQUID- PEDS
     Route: 048
     Dates: start: 20220726, end: 20220727
  40. DIAZOXIDE [Concomitant]
     Active Substance: DIAZOXIDE
     Dosage: 15 MG, TID, ORAL LIQUID- PEDS
     Route: 048
     Dates: start: 20220727, end: 20220728
  41. CHLOROTHIAZIDE SODIUM [Concomitant]
     Active Substance: CHLOROTHIAZIDE SODIUM
     Indication: Product used for unknown indication
     Dosage: 18 MG Q8 (FOR ORAL LIQUID-PEDS)
     Route: 050
     Dates: start: 20220413, end: 20220417
  42. CHLOROTHIAZIDE SODIUM [Concomitant]
     Active Substance: CHLOROTHIAZIDE SODIUM
     Dosage: 18 MG Q8 (FOR ORAL LIQUID-PEDS)
     Route: 050
     Dates: start: 20220417, end: 20220429
  43. EPINEPHRINE [Concomitant]
     Active Substance: EPINEPHRINE
     Indication: Cardiac failure acute
     Dosage: 0.04 MG, PRN (FOR INJECTABLE-PEDS)
     Route: 050
     Dates: start: 20220413, end: 20220420
  44. PHENOBARBITAL [Concomitant]
     Active Substance: PHENOBARBITAL
     Indication: Seizure
     Dosage: 9 MG, BID (FOR ORAL LIQUID-PEDS)
     Route: 050
     Dates: start: 20220413, end: 20220427
  45. PHENOBARBITAL [Concomitant]
     Active Substance: PHENOBARBITAL
     Dosage: 11 MG, BID, ORAL LIQUID-PEDS
     Route: 048
     Dates: start: 20220428, end: 20220429
  46. PHENOBARBITAL [Concomitant]
     Active Substance: PHENOBARBITAL
     Dosage: 6 MG, BID, ORAL LIQUID-PEDS
     Route: 048
     Dates: start: 20220518, end: 20220522
  47. PHENOBARBITAL [Concomitant]
     Active Substance: PHENOBARBITAL
     Dosage: 4 MG, BID, ORAL LIQUID-PEDS
     Route: 048
     Dates: start: 20220522, end: 20220525
  48. PHENOBARBITAL [Concomitant]
     Active Substance: PHENOBARBITAL
     Dosage: 2 MG, BID, ORAL LIQUID-PEDS
     Route: 048
     Dates: start: 20220526, end: 20220530
  49. HEPARIN [Concomitant]
     Active Substance: HEPARIN SODIUM
     Indication: Prophylaxis
     Dosage: 0.5 (20 UNIT/NACL 0.9% 20 ML INFUSION- NEO)
     Route: 050
     Dates: start: 20220413, end: 20220414
  50. HEPARIN [Concomitant]
     Active Substance: HEPARIN SODIUM
     Dosage: 50 (50 UNITS- PAPAVERINE, 6MG/NACL 0.9% 50 ML PEDS-50ML)
     Route: 050
     Dates: start: 20220414, end: 20220417
  51. HEPARIN SODIUM [Concomitant]
     Active Substance: HEPARIN SODIUM
     Indication: Prophylaxis
     Dosage: 3 ML, PRN (10 UNIT/ML PF INJECTABLE- PEDS)
     Route: 050
     Dates: start: 20220413, end: 20220417
  52. HEPARIN SODIUM [Concomitant]
     Active Substance: HEPARIN SODIUM
     Dosage: 3 ML, TID (10 UNIT/ML PF INJECTABLE- PEDS)
     Route: 050
     Dates: start: 20220417, end: 20220427
  53. HEPARIN SODIUM [Concomitant]
     Active Substance: HEPARIN SODIUM
     Dosage: 1 ML, TID (10 UNIT/ML PF INJECTABLE- PEDS)
     Route: 050
     Dates: start: 20220519, end: 20220623
  54. HEPARIN SODIUM [Concomitant]
     Active Substance: HEPARIN SODIUM
     Dosage: 3 ML, ONCE (10 UNIT/ML PF INJECTABLE- PEDS)
     Route: 050
     Dates: start: 20220726, end: 20220726
  55. HEPARIN SODIUM [Concomitant]
     Active Substance: HEPARIN SODIUM
     Dosage: 3 ML, TID (10 UNIT/ML PF INJECTABLE- PEDS)
     Route: 050
     Dates: start: 20220727, end: 20220728
  56. SODIUM PHENYLACETATE [Concomitant]
     Active Substance: SODIUM PHENYLACETATE
     Indication: Hyperammonaemia
     Dosage: 8.95 ML, QD (FOR SODIUM BENZOATE IV PIGGYBACK-PEDS)
     Route: 050
     Dates: start: 20220414, end: 20220416
  57. SODIUM CHLORIDE [Concomitant]
     Active Substance: SODIUM CHLORIDE
     Indication: Product used for unknown indication
     Route: 065
  58. AMMONUL [Concomitant]
     Active Substance: SODIUM BENZOATE\SODIUM PHENYLACETATE
     Indication: Hyperammonaemia
     Dosage: 89.5 ML, QD, SODIUM BENZOATE IV PIGGY BACK - PEDSIN DEXTROSE 10% IN WATER
     Route: 042
     Dates: start: 20220413, end: 20220416
  59. AMMONUL [Concomitant]
     Active Substance: SODIUM BENZOATE\SODIUM PHENYLACETATE
     Dosage: 110.25 ML, PRN, SODIUM BENZOATE IV PIGGY BACK - PEDSIN DEXTROSE 10% IN WATER
     Route: 042
     Dates: start: 20220426, end: 20220426
  60. AMMONUL [Concomitant]
     Active Substance: SODIUM BENZOATE\SODIUM PHENYLACETATE
     Dosage: 55.13 ML, PRN, SODIUM BENZOATE IV PIGGY BACK - PEDSIN DEXTROSE 10% IN WATER
     Route: 042
     Dates: start: 20220426, end: 20220427
  61. AMMONUL [Concomitant]
     Active Substance: SODIUM BENZOATE\SODIUM PHENYLACETATE
     Dosage: 110.25 ML, PRN, SODIUM BENZOATE IV PIGGY BACK - PEDSIN DEXTROSE 10% IN WATER
     Route: 042
     Dates: start: 20220427, end: 20220427
  62. AMMONUL [Concomitant]
     Active Substance: SODIUM BENZOATE\SODIUM PHENYLACETATE
     Dosage: 165.4 ML, QD, SODIUM BENZOATE IV PIGGY BACK - PEDS-IN DEXTROSE 10% IN WATER
     Route: 042
     Dates: start: 20220427, end: 20220428
  63. AMMONUL [Concomitant]
     Active Substance: SODIUM BENZOATE\SODIUM PHENYLACETATE
     Dosage: 110.25 ML, QD, SODIUM BENZOATE IV PIGGY BACK - PEDS-IN DEXTROSE 10% IN WATER
     Route: 042
     Dates: start: 20220428, end: 20220429
  64. AMMONUL [Concomitant]
     Active Substance: SODIUM BENZOATE\SODIUM PHENYLACETATE
     Dosage: 192.5 ML, QD, SODIUM BENZOATE IV PIGGY BACK - PEDS-IN DEXTROSE 10% IN WATER
     Route: 042
     Dates: start: 20220727, end: 20220728
  65. AMMONUL [Concomitant]
     Active Substance: SODIUM BENZOATE\SODIUM PHENYLACETATE
     Dosage: UNK
     Dates: start: 20220728
  66. FERROUS SULFATE [Concomitant]
     Active Substance: FERROUS SULFATE
     Indication: Iron deficiency
     Dosage: 12 MG, Q12H, ELEMENTAL IRON/ ML ORAL LIQUID-PEDS
     Route: 048
     Dates: start: 20220421, end: 20220429
  67. FERROUS SULFATE [Concomitant]
     Active Substance: FERROUS SULFATE
     Dosage: 12 MG, Q12H, ELEMENTAL IRON/ ML ORAL LIQUID-PEDS
     Route: 050
     Dates: start: 20220518, end: 20220602
  68. FERROUS SULFATE [Concomitant]
     Active Substance: FERROUS SULFATE
     Dosage: 15 MG, Q12H, ELEMENTAL IRON/ ML ORAL LIQUID-PEDS
     Route: 050
     Dates: start: 20220602, end: 20220614
  69. FERROUS SULFATE [Concomitant]
     Active Substance: FERROUS SULFATE
     Dosage: 15 MG, Q12H, ELEMENTAL IRON/ ML ORAL LIQUID-PEDS
     Route: 050
     Dates: start: 20220602, end: 20220614
  70. FERROUS SULFATE [Concomitant]
     Active Substance: FERROUS SULFATE
     Dosage: 15 MG, Q12H, ELEMENTAL IRON/ ML ORAL LIQUID-PEDS
     Route: 050
     Dates: start: 20220614, end: 20220623
  71. FERROUS SULFATE [Concomitant]
     Active Substance: FERROUS SULFATE
     Dosage: 15 MG, Q12H, ELEMENTAL IRON/ ML ORAL LIQUID-PEDS
     Route: 050
     Dates: start: 20220726, end: 20220728
  72. KEPPRA [Concomitant]
     Active Substance: LEVETIRACETAM
     Indication: Seizure
     Dosage: 150 MG, Q12H, INJECTABLE-PEDS
     Route: 050
     Dates: start: 20220519, end: 20220614
  73. KEPPRA [Concomitant]
     Active Substance: LEVETIRACETAM
     Dosage: 150 MG, Q12H, ORAL LIQUD- PEDS
     Route: 050
     Dates: start: 20220614, end: 20220623
  74. KEPPRA [Concomitant]
     Active Substance: LEVETIRACETAM
     Dosage: 150 MG, Q12H, ORAL LIQUD- PEDS
     Route: 050
     Dates: start: 20220726, end: 20220728
  75. ZINC OXIDE [Concomitant]
     Active Substance: ZINC OXIDE
     Indication: Dermatitis diaper
     Dosage: 5 TIMES/DAY, 20% TROPICAL-NEO OINTMENT
     Route: 061
     Dates: start: 20220519, end: 20220623
  76. ZINC OXIDE [Concomitant]
     Active Substance: ZINC OXIDE
     Dosage: TID, 20 % TOPICAL-NEOOINTMENT
     Route: 061
     Dates: start: 20220726, end: 20220728
  77. BACITRACIN [Concomitant]
     Active Substance: BACITRACIN
     Indication: Prophylaxis
     Dosage: 1 DOSE, QID, 500 UNITS/GRAM TOPICAL-PEDS
     Route: 061
     Dates: start: 20220613, end: 20220623
  78. EPOETIN ALFA [Concomitant]
     Active Substance: ERYTHROPOIETIN
     Indication: Anaemia
     Dosage: TIW, INJECTABLE-PEDS IN SODIUM CHLORIDE 0.9% 0.25ML
     Route: 058
     Dates: start: 20220415, end: 20220427
  79. EPOETIN ALFA [Concomitant]
     Active Substance: ERYTHROPOIETIN
     Dosage: TIW, INJECTABLE-PEDS IN SODIUM CHLORIDE 0.9% 0.25ML
     Route: 058
     Dates: start: 20220429, end: 20220429
  80. EPOETIN ALFA [Concomitant]
     Active Substance: ERYTHROPOIETIN
     Dosage: TIW, INJECTABLE-PEDS IN SODIUM CHLORIDE 0.9% 0.25ML
     Route: 058
     Dates: start: 20220518, end: 20220527
  81. EPOETIN ALFA [Concomitant]
     Active Substance: ERYTHROPOIETIN
     Dosage: TIW, INJECTABLE-PEDS IN SODIUM CHLORIDE 0.9% 0.25ML
     Route: 058
     Dates: start: 20220527, end: 20220602
  82. EPOETIN ALFA [Concomitant]
     Active Substance: ERYTHROPOIETIN
     Dosage: TIW, INJECTABLE-PEDS IN SODIUM CHLORIDE 0.9% 0.25ML
     Route: 058
     Dates: start: 20220602, end: 20220615
  83. EPOETIN ALFA [Concomitant]
     Active Substance: ERYTHROPOIETIN
     Dosage: TIW, INJECTABLE-PEDS IN SODIUM CHLORIDE 0.9% 0.25ML
     Route: 058
     Dates: start: 20220615, end: 20220623
  84. EPOETIN ALFA [Concomitant]
     Active Substance: ERYTHROPOIETIN
     Dosage: BIW, INJECTABLE-PEDS IN SODIUM CHLORIDE 0.9% 0.25ML
     Route: 058
     Dates: start: 20220726, end: 20220728
  85. ARGININE HCL [ARGININE HYDROCHLORIDE] [Concomitant]
     Dosage: 440 MG, PRN, IV PIGGY BACK- PEDS
     Route: 042
     Dates: start: 20220426, end: 20220427
  86. ARGININE HCL [ARGININE HYDROCHLORIDE] [Concomitant]
     Dosage: 880 MG, QD, IV PIGGY BACK- PEDS
     Route: 042
     Dates: start: 20220427, end: 20220429
  87. DIURIL [CHLOROTHIAZIDE] [Concomitant]
     Indication: Polyuria
     Dosage: 11 MG, TID, ORAL LIQUID-PEDS
     Route: 048
     Dates: start: 20220518, end: 20220520
  88. DIURIL [CHLOROTHIAZIDE] [Concomitant]
     Dosage: 13 MG, TID, ORAL LIQUID-PEDS
     Route: 048
     Dates: start: 20220520, end: 20220610
  89. DIURIL [CHLOROTHIAZIDE] [Concomitant]
     Dosage: 15 MG, TID, ORAL LIQUID- PEDS
     Route: 048
     Dates: start: 20220610, end: 20220614
  90. DIURIL [CHLOROTHIAZIDE] [Concomitant]
     Dosage: 15 MG, TID, ORAL LIQUID- PEDS
     Route: 048
     Dates: start: 20220614, end: 20220616
  91. DIURIL [CHLOROTHIAZIDE] [Concomitant]
     Dosage: 17 MG, TID, ORAL LIQUID- PEDS
     Route: 048
     Dates: start: 20220616, end: 20220620
  92. DIURIL [CHLOROTHIAZIDE] [Concomitant]
     Dosage: 20 MG, TID, ORAL LIQUID- PEDS
     Route: 048
     Dates: start: 20220620, end: 20220623
  93. DIURIL [CHLOROTHIAZIDE] [Concomitant]
     Dosage: 17 MG, TID, ORAL LIQUID- PEDS
     Route: 048
     Dates: start: 20220726, end: 20220727
  94. DIURIL [CHLOROTHIAZIDE] [Concomitant]
     Dosage: 20 MG, TID, ORAL LIQUID- PEDS
     Route: 048
     Dates: start: 20220727, end: 20220728
  95. LMX 4 [Concomitant]
     Indication: Pain prophylaxis
     Dosage: PRN, 4% TOP CRMTEGADERM DRESSING KIT- PEDS
     Route: 061
     Dates: start: 20220518, end: 20220610
  96. LMX 4 [Concomitant]
     Dosage: PRN, 4% TOP CRMTEGADERM DRESSING KIT- PEDS
     Route: 061
     Dates: start: 20220726, end: 20220728

REACTIONS (1)
  - Neutropenia [Recovered/Resolved]

NARRATIVE: CASE EVENT DATE: 20220726
